FAERS Safety Report 5546397-0 (Version None)
Quarter: 2007Q4

REPORT INFORMATION
  Report Type: 
  Country: None (occurrence: None)
  Receive Date: 20071206
  Receipt Date: 20071206
  Transmission Date: 20080405
  Serious: Yes (Hospitalization)
  Sender: FDA-Public Use
  Company Number: None

PATIENT
  Sex: Female
  Weight: 68.5 kg

DRUGS (5)
  1. CARBOPLATIN [Suspect]
     Dosage: 510 MG
     Dates: end: 20071116
  2. TAXOL [Suspect]
     Dosage: 292 MG
     Dates: end: 20071116
  3. LOPRESSOR [Concomitant]
  4. CADUET 10-40 (AMLODIPINE-ATORVASTATIN) [Concomitant]
  5. FUROSEMIDE [Concomitant]

REACTIONS (15)
  - AORTIC STENOSIS [None]
  - AORTIC VALVE CALCIFICATION [None]
  - AORTIC VALVE INCOMPETENCE [None]
  - ASCITES [None]
  - ATRIAL FIBRILLATION [None]
  - ATRIAL FLUTTER [None]
  - BLOOD UREA INCREASED [None]
  - DILATATION ATRIAL [None]
  - HYPONATRAEMIA [None]
  - MITRAL VALVE CALCIFICATION [None]
  - MYOCARDIAL INFARCTION [None]
  - PULMONARY ARTERY DILATATION [None]
  - RIGHT VENTRICULAR SYSTOLIC PRESSURE INCREASED [None]
  - TRICUSPID VALVE INCOMPETENCE [None]
  - VENTRICULAR HYPERTROPHY [None]
